FAERS Safety Report 8314921-0 (Version None)
Quarter: 2012Q2

REPORT INFORMATION
  Report Type: 
  Country: None (occurrence: None)
  Receive Date: 20120426
  Receipt Date: 20120418
  Transmission Date: 20120825
  Serious: Yes (Other)
  Sender: FDA-Public Use
  Company Number: CA-JNJFOC-20120407764

PATIENT
  Sex: Female
  Weight: 77 kg

DRUGS (4)
  1. IMURAN [Concomitant]
     Route: 048
  2. ESCITALOPRAM [Concomitant]
     Route: 065
  3. REMICADE [Suspect]
     Indication: CROHN'S DISEASE
     Dosage: HAD 18 INFUSIONS TO DATE
     Route: 042
     Dates: start: 20100224
  4. PROPRANOLOL [Concomitant]
     Route: 065

REACTIONS (1)
  - KERATOMILEUSIS [None]
